FAERS Safety Report 26169918 (Version 1)
Quarter: 2025Q4

REPORT INFORMATION
  Report Type: Spontaneous
  Country: US (occurrence: None)
  Receive Date: 20251216
  Receipt Date: 20251216
  Transmission Date: 20260118
  Serious: Yes (Death)
  Sender: FDA-CTU
  Company Number: None

PATIENT
  Age: 65 Year
  Sex: Male
  Weight: 72 kg

DRUGS (3)
  1. YESCARTA [Suspect]
     Active Substance: AXICABTAGENE CILOLEUCEL
     Indication: Diffuse large B-cell lymphoma
     Dosage: OTHER FREQUENCY : 1;
     Route: 042
     Dates: start: 20250730, end: 20250730
  2. FLUDARABINE [Suspect]
     Active Substance: FLUDARABINE PHOSPHATE
  3. CYCLOPHOSPHAMIDE [Suspect]
     Active Substance: CYCLOPHOSPHAMIDE

REACTIONS (15)
  - Small intestinal obstruction [None]
  - Lymphodepletion [None]
  - Neurotoxicity [None]
  - Brain injury [None]
  - Malnutrition [None]
  - Clostridium difficile colitis [None]
  - Enteritis [None]
  - Pneumonia [None]
  - Staphylococcal bacteraemia [None]
  - Tachycardia [None]
  - Pulmonary embolism [None]
  - Cardio-respiratory arrest [None]
  - Unresponsive to stimuli [None]
  - Septic shock [None]
  - Candida test positive [None]

NARRATIVE: CASE EVENT DATE: 20251119
